FAERS Safety Report 10724527 (Version 1)
Quarter: 2015Q1

REPORT INFORMATION
  Report Type: Spontaneous
  Country: SE (occurrence: SE)
  Receive Date: 20150120
  Receipt Date: 20150120
  Transmission Date: 20150721
  Serious: Yes (Other)
  Sender: FDA-Public Use
  Company Number: SE-BAYER-2015-002465

PATIENT
  Age: 27 Year
  Sex: Female
  Weight: 85 kg

DRUGS (2)
  1. CANESTEN COMBIPACK 200 MG [Suspect]
     Active Substance: CLOTRIMAZOLE
     Indication: GENITAL INFECTION FUNGAL
     Dates: start: 20141203
  2. CANESTEN COMBIPACK 200 MG [Suspect]
     Active Substance: CLOTRIMAZOLE

REACTIONS (3)
  - Decreased appetite [None]
  - Nausea [Not Recovered/Not Resolved]
  - Fatigue [None]

NARRATIVE: CASE EVENT DATE: 20141204
